FAERS Safety Report 4774415-6 (Version None)
Quarter: 2005Q3

REPORT INFORMATION
  Report Type: 
  Country: None (occurrence: None)
  Receive Date: 20050919
  Receipt Date: 20050919
  Transmission Date: 20060218
  Serious: Yes (Hospitalization)
  Sender: FDA-Public Use
  Company Number: None

PATIENT
  Age: 82 Year
  Sex: Female
  Weight: 51 kg

DRUGS (3)
  1. ERBITUX 400 MG/M2 X1 250 MG /M2 G [Suspect]
     Indication: PANCREATIC CARCINOMA
     Dosage: WEEKLY IV
     Route: 042
     Dates: start: 20050215, end: 20050329
  2. GEMCITABINE 50 MG/M2 [Suspect]
     Dosage: 2X WEEK IV
     Route: 042
     Dates: start: 20050222, end: 20050401
  3. RADIATION [Concomitant]

REACTIONS (3)
  - BACTERAEMIA [None]
  - BILE DUCT OBSTRUCTION [None]
  - STENT OCCLUSION [None]
